FAERS Safety Report 4352781-3 (Version None)
Quarter: 2004Q2

REPORT INFORMATION
  Report Type: 
  Country: None (occurrence: None)
  Receive Date: 20040429
  Receipt Date: 20040422
  Transmission Date: 20050107
  Serious: Yes (Life-Threatening, Hospitalization, Other)
  Sender: FDA-Public Use
  Company Number: 200403628

PATIENT
  Age: 55 Year
  Sex: Male
  Weight: 99.7913 kg

DRUGS (4)
  1. MOTRIN PRODUCT (IBUPROFEN) [Suspect]
     Indication: PAIN IN JAW
     Dosage: 10-12 PER DAY, 4-5 DAYS
     Dates: start: 20040201
  2. PEG-INTRON [Suspect]
     Indication: HEPATITIS C
     Dosage: 300 MCG SUBCUTANEOUS
     Route: 058
  3. REBETOL [Suspect]
     Indication: HEPATITIS C
     Dosage: 1400 MG ORAL
     Route: 048
  4. EPOGEN [Concomitant]

REACTIONS (4)
  - GASTROINTESTINAL HAEMORRHAGE [None]
  - HAEMATEMESIS [None]
  - MYOCARDIAL INFARCTION [None]
  - OVERDOSE [None]
